FAERS Safety Report 6324985-1 (Version None)
Quarter: 2009Q3

REPORT INFORMATION
  Report Type: 
  Country: None (occurrence: None)
  Receive Date: 20090824
  Receipt Date: 20090813
  Transmission Date: 20100115
  Serious: Yes (Hospitalization, Other)
  Sender: FDA-Public Use
  Company Number: PT-JNJFOC-20090806257

PATIENT
  Age: 34 Year
  Sex: Female

DRUGS (3)
  1. INFLIXIMAB [Suspect]
     Indication: COLITIS ULCERATIVE
     Route: 042
  2. AZATHIOPRINE [Suspect]
     Indication: COLITIS ULCERATIVE
     Dosage: 2.0-3.3 MG/KG/DAY FOR 5 YEARS
  3. MYCOPHENOLATE MOFETIL [Concomitant]
     Indication: COLITIS ULCERATIVE
     Dosage: FOR 6 MONTHS

REACTIONS (6)
  - COLITIS ULCERATIVE [None]
  - DIFFUSE LARGE B-CELL LYMPHOMA [None]
  - EPSTEIN-BARR VIRUS INFECTION [None]
  - HERPES OESOPHAGITIS [None]
  - ORAL CANDIDIASIS [None]
  - PERIRECTAL ABSCESS [None]
